FAERS Safety Report 8617037-9 (Version None)
Quarter: 2012Q3

REPORT INFORMATION
  Report Type: 
  Country: None (occurrence: None)
  Receive Date: 20120823
  Receipt Date: 20120817
  Transmission Date: 20120928
  Serious: Yes (Hospitalization, Other)
  Sender: FDA-Public Use
  Company Number: JP-B.I. PHARMACEUTICALS,INC./RIDGEFIELD-2012-EU-04042GD

PATIENT
  Age: 7 Decade
  Sex: Female

DRUGS (1)
  1. PRADAXA [Suspect]
     Route: 048

REACTIONS (6)
  - VOMITING [None]
  - SHOCK [None]
  - HAEMORRHAGIC HEPATIC CYST [None]
  - PALLOR [None]
  - LOSS OF CONSCIOUSNESS [None]
  - HAEMORRHAGIC ASCITES [None]
